FAERS Safety Report 18769162 (Version 1)
Quarter: 2021Q1

REPORT INFORMATION
  Report Type: Spontaneous
  Country: IN (occurrence: FR)
  Receive Date: 20210121
  Receipt Date: 20210121
  Transmission Date: 20210419
  Serious: Yes (Death, Life-Threatening, Other)
  Sender: FDA-Public Use
  Company Number: FR-ELI_LILLY_AND_COMPANY-FR201810007516

PATIENT
  Age: 66 Year
  Sex: Female

DRUGS (4)
  1. CARBOPLATIN. [Suspect]
     Active Substance: CARBOPLATIN
     Indication: OVARIAN CANCER
  2. GEMCITABINE HYDROCHLORIDE. [Suspect]
     Active Substance: GEMCITABINE HYDROCHLORIDE
     Indication: OVARIAN CANCER RECURRENT
     Dosage: UNK, CYCLICAL
     Route: 065
     Dates: start: 201508, end: 201512
  3. GEMCITABINE HYDROCHLORIDE. [Suspect]
     Active Substance: GEMCITABINE HYDROCHLORIDE
     Indication: OVARIAN CANCER
  4. CARBOPLATIN. [Suspect]
     Active Substance: CARBOPLATIN
     Indication: OVARIAN CANCER RECURRENT
     Dosage: UNK UNK, CYCLICAL
     Route: 065
     Dates: start: 201508, end: 201512

REACTIONS (11)
  - Drug hypersensitivity [Recovered/Resolved]
  - Thrombocytopenia [Unknown]
  - Alopecia [Unknown]
  - Toxicity to various agents [Unknown]
  - Escherichia infection [Recovered/Resolved]
  - Anaemia [Unknown]
  - Hypersensitivity [Unknown]
  - Anaemia [Unknown]
  - Neutropenia [Unknown]
  - Drug-induced liver injury [Unknown]
  - Neuropathy peripheral [Unknown]

NARRATIVE: CASE EVENT DATE: 2017
